FAERS Safety Report 18358629 (Version 2)
Quarter: 2020Q4

REPORT INFORMATION
  Report Type: Report from Study
  Country: US (occurrence: US)
  Receive Date: 20201008
  Receipt Date: 20201112
  Transmission Date: 20210114
  Serious: No
  Sender: FDA-Public Use
  Company Number: US-IPSEN BIOPHARMACEUTICALS, INC.-2019-04628

PATIENT
  Age: 9 Year
  Sex: Male

DRUGS (9)
  1. DYSPORT [Suspect]
     Active Substance: ABOBOTULINUMTOXINA
     Indication: MUSCLE SPASTICITY
  2. CLONIDINE. [Concomitant]
     Active Substance: CLONIDINE
     Indication: PROCEDURAL PAIN
     Dosage: FREQUENCY: CONTINUOUS
     Route: 037
     Dates: start: 20180403, end: 20180407
  3. ROPIVACAINE. [Concomitant]
     Active Substance: ROPIVACAINE HYDROCHLORIDE
     Indication: PROCEDURAL PAIN
     Dosage: FREQUENCY: CONTINUOUS
     Route: 037
     Dates: start: 20180403, end: 20180407
  4. DYSPORT [Suspect]
     Active Substance: ABOBOTULINUMTOXINA
     Indication: MUSCLE SPASTICITY
     Dosage: 1000 UNITS
     Route: 030
     Dates: start: 20180129, end: 20180129
  5. DYSPORT [Suspect]
     Active Substance: ABOBOTULINUMTOXINA
     Indication: MUSCLE SPASTICITY
     Dosage: 1000 UNITS (IN HAMSTRING (400 UNITS IN BOTH LEFT AND RIGHT SIDE), HIP FLEXORS (50 UNITS IN BOTH LEFT
     Route: 030
     Dates: start: 20190305, end: 20190305
  6. DYSPORT [Suspect]
     Active Substance: ABOBOTULINUMTOXINA
     Indication: OFF LABEL USE
  7. BACLOFEN. [Concomitant]
     Active Substance: BACLOFEN
     Dates: start: 20170707
  8. BACLOFEN. [Concomitant]
     Active Substance: BACLOFEN
     Indication: MUSCLE SPASTICITY
     Route: 037
     Dates: start: 20170707, end: 201708
  9. SENNA [Concomitant]
     Active Substance: SENNA LEAF\SENNOSIDES\SENNOSIDES A AND B
     Indication: CONSTIPATION
     Route: 048
     Dates: end: 201709

REACTIONS (4)
  - Off label use [Unknown]
  - Muscle spasms [Recovered/Resolved]
  - Bone deformity [Not Recovered/Not Resolved]
  - Muscular weakness [Recovered/Resolved]

NARRATIVE: CASE EVENT DATE: 20180404
